FAERS Safety Report 11126874 (Version 15)
Quarter: 2016Q4

REPORT INFORMATION
  Report Type: Spontaneous
  Country: US (occurrence: US)
  Receive Date: 20150520
  Receipt Date: 20161222
  Transmission Date: 20170206
  Serious: Yes (Hospitalization, Other)
  Sender: FDA-Public Use
  Company Number: US-BIOMARINAP-US-2015-106418

PATIENT
  Age: 32 Year
  Sex: Female

DRUGS (1)
  1. ALDURAZYME [Suspect]
     Active Substance: LARONIDASE
     Indication: MUCOPOLYSACCHARIDOSIS I
     Dosage: 0.58 MG/KG, QW
     Route: 041
     Dates: start: 20051001

REACTIONS (12)
  - Device issue [Not Recovered/Not Resolved]
  - Surgery [Unknown]
  - Cardiac disorder [Unknown]
  - Headache [Unknown]
  - Fatigue [Not Recovered/Not Resolved]
  - Pleural effusion [Unknown]
  - Heart rate increased [Not Recovered/Not Resolved]
  - International normalised ratio decreased [Unknown]
  - Cholelithiasis [Not Recovered/Not Resolved]
  - Shunt infection [Unknown]
  - Central nervous system infection [Not Recovered/Not Resolved]
  - Mitral valve incompetence [Not Recovered/Not Resolved]

NARRATIVE: CASE EVENT DATE: 20150506
